FAERS Safety Report 23135844 (Version 3)
Quarter: 2025Q3

REPORT INFORMATION
  Report Type: Report from Study
  Country: US (occurrence: US)
  Receive Date: 20231101
  Receipt Date: 20250728
  Transmission Date: 20251020
  Serious: Yes (Hospitalization, Other)
  Sender: ABBVIE
  Company Number: US-ABBVIE-5472676

PATIENT
  Age: 65 Year
  Sex: Female
  Weight: 77.11 kg

DRUGS (8)
  1. RINVOQ [Suspect]
     Active Substance: UPADACITINIB
     Indication: Colitis ulcerative
     Dosage: 30 MILLIGRAM?LAST ADMIN DATE: 2023
     Route: 048
     Dates: start: 20230714
  2. RINVOQ [Suspect]
     Active Substance: UPADACITINIB
     Indication: Colitis ulcerative
     Route: 048
  3. LOVASTATIN [Concomitant]
     Active Substance: LOVASTATIN
     Indication: Cardiac failure congestive
  4. SPIRONOLACTONE [Concomitant]
     Active Substance: SPIRONOLACTONE
     Indication: Cardiac failure congestive
  5. CLOPIDOGREL [Concomitant]
     Active Substance: CLOPIDOGREL BISULFATE
     Indication: Cardiac failure congestive
  6. LOSARTAN [Concomitant]
     Active Substance: LOSARTAN
     Indication: Cardiac failure congestive
  7. FUROSEMIDE [Concomitant]
     Active Substance: FUROSEMIDE
     Indication: Cardiac failure congestive
  8. DOFETILIDE [Concomitant]
     Active Substance: DOFETILIDE
     Indication: Cardiac failure congestive

REACTIONS (2)
  - Diarrhoea haemorrhagic [Recovering/Resolving]
  - Product residue present [Recovered/Resolved]

NARRATIVE: CASE EVENT DATE: 20230801
